FAERS Safety Report 5151577-2 (Version None)
Quarter: 2006Q4

REPORT INFORMATION
  Report Type: 
  Country: None (occurrence: None)
  Receive Date: 20061109
  Receipt Date: 20061101
  Transmission Date: 20070319
  Serious: Yes (Hospitalization)
  Sender: FDA-Public Use
  Company Number: 2006AL003395

PATIENT
  Age: 66 Year
  Sex: Male

DRUGS (1)
  1. DICLOFENAC SODIUM [Suspect]
     Indication: BACK PAIN

REACTIONS (9)
  - ANOREXIA [None]
  - ECTHYMA [None]
  - ESCHAR [None]
  - GANGRENE [None]
  - LETHARGY [None]
  - MALAISE [None]
  - NEUTROPENIA [None]
  - PSEUDOMONAS INFECTION [None]
  - SKIN LESION [None]
